FAERS Safety Report 11395093 (Version 1)
Quarter: 2015Q3

REPORT INFORMATION
  Report Type: Spontaneous
  Country: JP (occurrence: JP)
  Receive Date: 20150819
  Receipt Date: 20150819
  Transmission Date: 20151125
  Serious: Yes (Hospitalization, Other)
  Sender: FDA-Public Use
  Company Number: PHJP2015JP009316

PATIENT
  Age: 26 Year
  Sex: Female
  Weight: 57 kg

DRUGS (5)
  1. CLOZARIL [Suspect]
     Active Substance: CLOZAPINE
     Dosage: 150 MG, QD
     Route: 048
     Dates: start: 20150522, end: 20150529
  2. CLOZARIL [Suspect]
     Active Substance: CLOZAPINE
     Dosage: 125 MG, QD
     Route: 048
     Dates: start: 20150530, end: 20150604
  3. LEUCON [Concomitant]
     Indication: WHITE BLOOD CELL COUNT INCREASED
     Dosage: 10 MG, TID
     Route: 048
     Dates: start: 20150408, end: 20150604
  4. CLOZARIL [Suspect]
     Active Substance: CLOZAPINE
     Indication: SCHIZOPHRENIA
     Dosage: 50 MG, TID
     Route: 048
     Dates: start: 20150416, end: 20150521
  5. LITHIUM. [Concomitant]
     Active Substance: LITHIUM
     Indication: WHITE BLOOD CELL COUNT INCREASED
     Dosage: 100 MG, TID
     Route: 048
     Dates: start: 20150408, end: 20150604

REACTIONS (7)
  - Neutropenia [Recovered/Resolved]
  - Pyrexia [Unknown]
  - Neutrophil percentage increased [Recovered/Resolved]
  - Pneumonia [Unknown]
  - Infection [Unknown]
  - White blood cell count decreased [Recovered/Resolved]
  - White blood cell count increased [Unknown]

NARRATIVE: CASE EVENT DATE: 20150529
